FAERS Safety Report 5801391-7 (Version None)
Quarter: 2008Q3

REPORT INFORMATION
  Report Type: 
  Country: None (occurrence: None)
  Receive Date: 20080707
  Receipt Date: 20080624
  Transmission Date: 20090109
  Serious: Yes (Hospitalization)
  Sender: FDA-Public Use
  Company Number: US-NOVOPROD-276750

PATIENT
  Sex: Female

DRUGS (3)
  1. NOVOLOG [Suspect]
     Indication: DIABETES MELLITUS
     Dosage: IU, QD 40 IU AM + 50 IU PM + SLIDING SCALE
     Route: 058
  2. LEVEMIR [Concomitant]
     Indication: DIABETES MELLITUS
     Dosage: 50 IU, QD AT BEDTIME
     Route: 058
  3. PREDNISONE 50MG TAB [Concomitant]
     Indication: DRUG USE FOR UNKNOWN INDICATION
     Dosage: 5 MG, QD

REACTIONS (3)
  - DEVICE MALFUNCTION [None]
  - DIABETES MELLITUS INADEQUATE CONTROL [None]
  - SARCOIDOSIS [None]
